FAERS Safety Report 6336143-5 (Version None)
Quarter: 2009Q3

REPORT INFORMATION
  Report Type: 
  Country: None (occurrence: None)
  Receive Date: 20090831
  Receipt Date: 20090831
  Transmission Date: 20100115
  Serious: Yes (Hospitalization)
  Sender: FDA-Public Use
  Company Number: None

PATIENT
  Age: 49 Year
  Sex: Male
  Weight: 88 kg

DRUGS (1)
  1. MERCAPTOPURINE [Suspect]
     Indication: CROHN'S DISEASE
     Dosage: 50 MG EVERY DAY PO
     Route: 048
     Dates: start: 20090820, end: 20090822

REACTIONS (9)
  - CHILLS [None]
  - COUGH [None]
  - DECREASED APPETITE [None]
  - HEADACHE [None]
  - HYPERHIDROSIS [None]
  - INFECTION [None]
  - PNEUMONIA [None]
  - PYREXIA [None]
  - WHITE BLOOD CELL COUNT INCREASED [None]
